FAERS Safety Report 8271662 (Version 3)
Quarter: 2014Q2

REPORT INFORMATION
  Report Type: Spontaneous
  Country: US (occurrence: US)
  Receive Date: 20111201
  Receipt Date: 20140626
  Transmission Date: 20141212
  Serious: Yes (Other)
  Sender: FDA-Public Use
  Company Number: US-ROCHE-792841

PATIENT
  Age: 16 Year
  Sex: Female
  Weight: 63.56 kg

DRUGS (1)
  1. ACCUTANE [Suspect]
     Indication: ACNE
     Route: 065
     Dates: start: 20000801, end: 20001231

REACTIONS (8)
  - Colitis ulcerative [Unknown]
  - Inflammatory bowel disease [Unknown]
  - Colon injury [Unknown]
  - Alopecia [Unknown]
  - Skin exfoliation [Unknown]
  - Dry skin [Unknown]
  - Emotional distress [Unknown]
  - Hepatic enzyme increased [Unknown]
